FAERS Safety Report 17955426 (Version 2)
Quarter: 2020Q3

REPORT INFORMATION
  Report Type: Spontaneous
  Country: US (occurrence: US)
  Receive Date: 20200629
  Receipt Date: 20200708
  Transmission Date: 20201103
  Serious: No
  Sender: FDA-Public Use
  Company Number: US-TEVA-2020-US-1792017

PATIENT
  Sex: Female

DRUGS (1)
  1. CHLORDIAZEPOXIDE HYDROCHLORIDE. [Suspect]
     Active Substance: CHLORDIAZEPOXIDE HYDROCHLORIDE
     Indication: ALCOHOL ABUSE
     Route: 065

REACTIONS (2)
  - Adverse event [Unknown]
  - Withdrawal syndrome [Unknown]
